FAERS Safety Report 8507553-2 (Version None)
Quarter: 2012Q3

REPORT INFORMATION
  Report Type: 
  Country: None (occurrence: None)
  Receive Date: 20120713
  Receipt Date: 20120705
  Transmission Date: 20120928
  Serious: Yes (Hospitalization)
  Sender: FDA-Public Use
  Company Number: US-BIOGENIDEC-2012BI020539

PATIENT
  Age: 51 Year
  Sex: Female

DRUGS (3)
  1. TYSABRI [Suspect]
     Route: 042
     Dates: start: 20060828, end: 20070717
  2. TYSABRI [Suspect]
     Route: 042
     Dates: start: 20080130
  3. TYSABRI [Suspect]
     Indication: MULTIPLE SCLEROSIS
     Route: 042
     Dates: start: 20050221

REACTIONS (4)
  - BACK DISORDER [None]
  - MUSCLE SPASMS [None]
  - MALAISE [None]
  - DEVICE OCCLUSION [None]
